FAERS Safety Report 10139444 (Version 2)
Quarter: 2014Q2

REPORT INFORMATION
  Report Type: Spontaneous
  Country: US (occurrence: US)
  Receive Date: 20140429
  Receipt Date: 20140429
  Transmission Date: 20141212
  Serious: Yes (Hospitalization)
  Sender: FDA-Public Use
  Company Number: US-CELGENEUS-163-21880-14041691

PATIENT
  Sex: Female

DRUGS (6)
  1. REVLIMID [Suspect]
     Indication: PLASMA CELL MYELOMA
     Dosage: 5 MILLIGRAM
     Route: 048
     Dates: start: 201202
  2. REVLIMID [Suspect]
     Dosage: 15-25MG
     Route: 048
     Dates: start: 201302
  3. REVLIMID [Suspect]
     Dosage: 25 MILLIGRAM
     Route: 048
     Dates: start: 20140324
  4. ASPIRIN [Concomitant]
     Indication: PRODUCT USED FOR UNKNOWN INDICATION
     Route: 065
  5. METHOCARBAMOL [Concomitant]
     Indication: PRODUCT USED FOR UNKNOWN INDICATION
     Route: 065
  6. GABAPENTIN [Concomitant]
     Indication: PRODUCT USED FOR UNKNOWN INDICATION
     Route: 065

REACTIONS (2)
  - Vulvovaginal burning sensation [Unknown]
  - Vomiting [Unknown]
